FAERS Safety Report 5727958-2 (Version None)
Quarter: 2008Q2

REPORT INFORMATION
  Report Type: 
  Country: None (occurrence: None)
  Receive Date: 20080505
  Receipt Date: 20080423
  Transmission Date: 20081010
  Serious: Yes (Hospitalization)
  Sender: FDA-Public Use
  Company Number: FR-PFIZER INC-2008036202

PATIENT
  Sex: Male

DRUGS (7)
  1. LYRICA [Suspect]
     Indication: PAIN
     Route: 048
  2. TRAMADOL HCL [Suspect]
     Route: 048
  3. ACTONEL [Concomitant]
     Route: 048
  4. OROCAL VITAMIN D [Concomitant]
     Route: 048
  5. OMEPRAZOLE [Concomitant]
     Route: 048
  6. ZOLPIDEM TARTRATE [Concomitant]
     Route: 048
  7. COAPROVEL [Concomitant]
     Route: 048

REACTIONS (3)
  - CONFUSIONAL STATE [None]
  - FALL [None]
  - HALLUCINATION [None]
